FAERS Safety Report 12965880 (Version 2)
Quarter: 2016Q4

REPORT INFORMATION
  Report Type: Spontaneous
  Country: IT (occurrence: IT)
  Receive Date: 20161122
  Receipt Date: 20161202
  Transmission Date: 20170207
  Serious: Yes (Hospitalization)
  Sender: FDA-Public Use
  Company Number: IT-SA-2016SA209199

PATIENT
  Sex: Female

DRUGS (1)
  1. AUBAGIO [Suspect]
     Active Substance: TERIFLUNOMIDE
     Dosage: STRENGTH: 14 MG
     Route: 065
     Dates: start: 20150116, end: 20161111

REACTIONS (1)
  - Tachycardia paroxysmal [Recovering/Resolving]

NARRATIVE: CASE EVENT DATE: 20161110
